FAERS Safety Report 9991650 (Version 1)
Quarter: 2014Q1

REPORT INFORMATION
  Report Type: Spontaneous
  Country: BR (occurrence: BR)
  Receive Date: 20140310
  Receipt Date: 20140310
  Transmission Date: 20141002
  Serious: Yes (Other)
  Sender: FDA-Public Use
  Company Number: BR-JNJFOC-20140214927

PATIENT
  Sex: Female

DRUGS (1)
  1. RISPERDAL [Suspect]
     Indication: PRODUCT USED FOR UNKNOWN INDICATION
     Route: 065

REACTIONS (5)
  - Depression [Recovered/Resolved]
  - Visual acuity reduced [Recovered/Resolved]
  - Galactorrhoea [Recovered/Resolved]
  - Decreased activity [Recovered/Resolved]
  - Parosmia [Recovered/Resolved]
